FAERS Safety Report 25211128 (Version 1)
Quarter: 2025Q2

REPORT INFORMATION
  Report Type: Spontaneous
  Country: CA (occurrence: CA)
  Receive Date: 20250417
  Receipt Date: 20250417
  Transmission Date: 20250716
  Serious: Yes (Death)
  Sender: SAMSUNG BIOEPIS
  Company Number: CA-SAMSUNG BIOEPIS-SB-2025-13451

PATIENT
  Age: 97 Year
  Sex: Male

DRUGS (1)
  1. BYOOVIZ [Suspect]
     Active Substance: RANIBIZUMAB-NUNA
     Indication: Product used for unknown indication

REACTIONS (1)
  - Death [Fatal]
